FAERS Safety Report 12587485 (Version 5)
Quarter: 2019Q1

REPORT INFORMATION
  Report Type: Report from Study
  Country: US (occurrence: US)
  Receive Date: 20160725
  Receipt Date: 20190330
  Transmission Date: 20190417
  Serious: Yes (Other)
  Sender: FDA-Public Use
  Company Number: PHHY2016US047872

PATIENT
  Age: 57 Year
  Sex: Male

DRUGS (2)
  1. GILENYA [Suspect]
     Active Substance: FINGOLIMOD HYDROCHLORIDE
     Indication: MULTIPLE SCLEROSIS
     Dosage: UNK, QD
     Route: 048
  2. ERYTHROMYCIN. [Concomitant]
     Active Substance: ERYTHROMYCIN
     Indication: EYE INFECTION
     Dosage: 5 MG, UNK
     Route: 065
     Dates: start: 20151226, end: 20160105

REACTIONS (14)
  - Cough [Recovered/Resolved]
  - Melanocytic naevus [Not Recovered/Not Resolved]
  - Lentigo [Not Recovered/Not Resolved]
  - Seborrhoeic keratosis [Not Recovered/Not Resolved]
  - Dyspnoea [Recovered/Resolved]
  - Dry skin [Not Recovered/Not Resolved]
  - Respiratory tract congestion [Recovered/Resolved]
  - Lower respiratory tract infection bacterial [Recovered/Resolved]
  - Nasal congestion [Recovered/Resolved]
  - Bronchitis [Recovered/Resolved]
  - Neutrophil count increased [Recovered/Resolved]
  - Sebaceous hyperplasia [Not Recovered/Not Resolved]
  - Lymphopenia [Not Recovered/Not Resolved]
  - Haemangioma of skin [Not Recovered/Not Resolved]

NARRATIVE: CASE EVENT DATE: 20151105
